FAERS Safety Report 7132106-0 (Version None)
Quarter: 2010Q4

REPORT INFORMATION
  Report Type: 
  Country: None (occurrence: None)
  Receive Date: 20101202
  Receipt Date: 20101124
  Transmission Date: 20110411
  Serious: Yes (Other)
  Sender: FDA-Public Use
  Company Number: CA-JNJFOC-20100501956

PATIENT
  Sex: Female
  Weight: 54.2 kg

DRUGS (1)
  1. REMICADE [Suspect]
     Indication: CROHN'S DISEASE
     Route: 042

REACTIONS (5)
  - EYE DISCHARGE [None]
  - EYE PRURITUS [None]
  - INFLAMMATION [None]
  - MASS [None]
  - OCULAR HYPERAEMIA [None]
